FAERS Safety Report 10396085 (Version 1)
Quarter: 2014Q1

REPORT INFORMATION
  Report Type: Spontaneous
  Country: US (occurrence: None)
  Receive Date: 20130724
  Receipt Date: 20130724
  Transmission Date: 20141002
  Serious: Yes (Other)
  Sender: FDA-Public Use
  Company Number: PHHY2010US77794

PATIENT
  Age: 64 Year
  Sex: Female
  Weight: 55.93 kg

DRUGS (4)
  1. GLEEVEC [Suspect]
     Indication: GASTROINTESTINAL STROMAL TUMOUR
     Route: 048
     Dates: start: 20100910, end: 20120717
  2. OMEPRAZOLE [Concomitant]
  3. IRON [Concomitant]
  4. VITAMIN C (ASCORBIC ACID) [Concomitant]

REACTIONS (6)
  - Fluid retention [None]
  - Swelling [None]
  - Urticaria [None]
  - Rash [None]
  - Pain in extremity [None]
  - Diarrhoea [None]
